FAERS Safety Report 8050127-0 (Version None)
Quarter: 2012Q1

REPORT INFORMATION
  Report Type: 
  Country: None (occurrence: None)
  Receive Date: 20120117
  Receipt Date: 20120110
  Transmission Date: 20120608
  Serious: Yes (Hospitalization, Disabling)
  Sender: FDA-Public Use
  Company Number: US-MERCK-1201USA01299

PATIENT
  Age: 20 Year
  Sex: Male
  Weight: 53 kg

DRUGS (4)
  1. BACTRIM [Concomitant]
     Route: 065
  2. TRUVADA [Concomitant]
     Route: 065
  3. AZITHROMYCIN [Concomitant]
     Route: 065
  4. ISENTRESS [Suspect]
     Indication: HIV INFECTION
     Route: 048
     Dates: start: 20110712, end: 20110902

REACTIONS (3)
  - FACE OEDEMA [None]
  - RASH GENERALISED [None]
  - SWELLING [None]
